FAERS Safety Report 18873889 (Version 3)
Quarter: 2021Q2

REPORT INFORMATION
  Report Type: Report from Study
  Country: US (occurrence: US)
  Receive Date: 20210210
  Receipt Date: 20210510
  Transmission Date: 20210717
  Serious: Yes (Death, Hospitalization, Other)
  Sender: FDA-Public Use
  Company Number: US-ROCHE-2764048

PATIENT
  Age: 70 Year
  Sex: Female
  Weight: 65.18 kg

DRUGS (4)
  1. OLAPARIB. [Suspect]
     Active Substance: OLAPARIB
     Indication: BREAST NEOPLASM
     Dosage: ON 10/OCT/2020, SHE RECEIVED LAST DOSE OF OLAPARIB PRIOR TO ONSET OF SERIOUS ADVERSE EVENT. ?TOTAL D
     Route: 048
     Dates: start: 20200207
  2. ATEZOLIZUMAB. [Suspect]
     Active Substance: ATEZOLIZUMAB
     Indication: BREAST NEOPLASM
     Dosage: ON 25/SEP/2020, SHE RECEIVED LAST DOSE OF ATEZOLIZUMAB PRIOR TO ONSET OF SERIOUS ADVERSE EVENT.
     Route: 042
     Dates: start: 20200207
  3. ATEZOLIZUMAB. [Suspect]
     Active Substance: ATEZOLIZUMAB
     Indication: BREAST CANCER
  4. OLAPARIB. [Suspect]
     Active Substance: OLAPARIB
     Indication: BREAST CANCER

REACTIONS (4)
  - Ascites [Recovered/Resolved with Sequelae]
  - Disease progression [Fatal]
  - Failure to thrive [Recovered/Resolved with Sequelae]
  - Anaemia [Unknown]

NARRATIVE: CASE EVENT DATE: 20201010
